FAERS Safety Report 10182514 (Version 1)
Quarter: 2014Q2

REPORT INFORMATION
  Report Type: Spontaneous
  Country: US (occurrence: None)
  Receive Date: 20140519
  Receipt Date: 20140519
  Transmission Date: 20141212
  Serious: Yes (Other)
  Sender: FDA-Public Use
  Company Number: None

PATIENT
  Age: 59 Year
  Sex: Female
  Weight: 88 kg

DRUGS (1)
  1. ALENDRONATE [Suspect]
     Indication: OSTEOPOROSIS
     Dosage: TAKEN BY MOUTH

REACTIONS (6)
  - Myalgia [None]
  - Gait disturbance [None]
  - C-reactive protein increased [None]
  - Musculoskeletal stiffness [None]
  - Muscular weakness [None]
  - Condition aggravated [None]
